FAERS Safety Report 10522150 (Version 1)
Quarter: 2014Q4

REPORT INFORMATION
  Report Type: Spontaneous
  Country: US (occurrence: None)
  Receive Date: 20141014
  Receipt Date: 20141014
  Transmission Date: 20150528
  Serious: Yes (Other)
  Sender: FDA-Public Use
  Company Number: US-001213

PATIENT
  Sex: Female

DRUGS (2)
  1. SOLUTIONS FOR PARENTERAL NUTRITION [Concomitant]
     Active Substance: AMINO ACIDS\DEXTROSE\ELECTROLYTES NOS
  2. GATTEX [Suspect]
     Active Substance: TEDUGLUTIDE\WATER
     Indication: SHORT-BOWEL SYNDROME
     Dosage: DF
     Route: 058

REACTIONS (7)
  - Cholecystitis [None]
  - Nausea [None]
  - Vomiting [None]
  - Oedema peripheral [None]
  - Abdominal pain [None]
  - Weight decreased [None]
  - Gastrointestinal stoma output increased [None]

NARRATIVE: CASE EVENT DATE: 2014
